FAERS Safety Report 5324542-X (Version None)
Quarter: 2007Q2

REPORT INFORMATION
  Report Type: 
  Country: None (occurrence: None)
  Receive Date: 20070508
  Receipt Date: 20070424
  Transmission Date: 20071010
  Serious: Yes (Hospitalization)
  Sender: FDA-Public Use
  Company Number: RENA-12182

PATIENT
  Age: 81 Year
  Sex: Male
  Weight: 67 kg

DRUGS (16)
  1. RENAGEL. MFR: GENZYME [Suspect]
     Indication: HYPERPHOSPHATAEMIA
     Dosage: 0.8 G QD PO
     Route: 048
     Dates: start: 20070320, end: 20070327
  2. DI-ANTALVIC (DEXTROPROPOXYPHENE) [Suspect]
     Indication: DRUG USE FOR UNKNOWN INDICATION
     Dosage: 6 UNITS DAILY PO
     Route: 048
     Dates: start: 20070321, end: 20070327
  3. KENZEN, MFR: TAKEDA CHEMICAL IND. [Suspect]
     Indication: HYPERTENSION
     Dosage: 16 MG DAILY PO
     Route: 048
     Dates: start: 20070216, end: 20070327
  4. SIMVASTATIN [Suspect]
     Indication: HYPERCHOLESTEROLAEMIA
     Dosage: 40 MG DAILY PO
     Route: 048
     Dates: start: 20061212, end: 20070327
  5. LASIX [Suspect]
     Indication: HYPERTENSION
     Dosage: 1 G DAILY PO
     Route: 048
     Dates: start: 20061003, end: 20070327
  6. KARDEGIC. MFR: SYNTHELABO (L.E.R.S.) [Suspect]
     Indication: DRUG USE FOR UNKNOWN INDICATION
     Dosage: 160 MG DAILY PO
     Route: 048
     Dates: start: 20070323, end: 20070327
  7. FONZYLANE [Concomitant]
  8. DUPHALAC [Concomitant]
  9. STILNOX [Concomitant]
  10. XATRAL [Concomitant]
  11. LOXEN [Concomitant]
  12. EUPRESSYL [Concomitant]
  13. AMLOR [Concomitant]
  14. ATENOLOL [Concomitant]
  15. SKENAN [Concomitant]
  16. CORTANCYL [Concomitant]

REACTIONS (3)
  - NEUTROPENIA [None]
  - PSEUDOMONAL SEPSIS [None]
  - WHITE BLOOD CELL COUNT DECREASED [None]
